FAERS Safety Report 8407364-2 (Version None)
Quarter: 2012Q2

REPORT INFORMATION
  Report Type: 
  Country: None (occurrence: None)
  Receive Date: 20120604
  Receipt Date: 20120521
  Transmission Date: 20120825
  Serious: Yes (Disabling, Other)
  Sender: FDA-Public Use
  Company Number: NO-ELI_LILLY_AND_COMPANY-NO201205008985

PATIENT
  Sex: Female

DRUGS (6)
  1. TRILAFON [Concomitant]
     Indication: SCHIZOPHRENIA
     Dosage: 4 MG, UNK
     Dates: start: 20100420, end: 20100502
  2. RISPERDAL [Concomitant]
     Dosage: UNK
     Route: 065
     Dates: start: 20100107, end: 20100101
  3. MULTI-VITAMINS [Concomitant]
  4. LOVAZA [Concomitant]
  5. ZYPREXA [Suspect]
     Indication: SCHIZOPHRENIA
     Dosage: UNK
     Dates: start: 20100107, end: 20100503
  6. RISPERDAL [Concomitant]
     Indication: SCHIZOPHRENIA, PARANOID TYPE
     Dosage: UNK
     Dates: start: 20090801, end: 20100106

REACTIONS (11)
  - GALACTORRHOEA [None]
  - MUSCULOSKELETAL STIFFNESS [None]
  - EXTRAPYRAMIDAL DISORDER [None]
  - MYALGIA [None]
  - WEIGHT INCREASED [None]
  - SEDATION [None]
  - FATIGUE [None]
  - BALANCE DISORDER [None]
  - OEDEMA PERIPHERAL [None]
  - ARTHRALGIA [None]
  - SKIN STRIAE [None]
